FAERS Safety Report 9364484 (Version 1)
Quarter: 2013Q2

REPORT INFORMATION
  Report Type: Spontaneous
  Country: US (occurrence: US)
  Receive Date: 20130624
  Receipt Date: 20130624
  Transmission Date: 20140414
  Serious: Yes (Hospitalization)
  Sender: FDA-Public Use
  Company Number: US-B.I. PHARMACEUTICALS,INC./RIDGEFIELD-2013-BI-17589BP

PATIENT
  Age: 52 Year
  Sex: Female
  Weight: 43 kg

DRUGS (17)
  1. SPIRIVA [Suspect]
     Indication: CHRONIC OBSTRUCTIVE PULMONARY DISEASE
     Dosage: 18 MG
     Route: 048
     Dates: start: 2011
  2. AMBIEN [Concomitant]
     Indication: INSOMNIA
     Dosage: 10 MG
     Route: 048
  3. LISINOPRIL [Concomitant]
     Indication: HYPERTENSION
     Dosage: 10 MG
     Route: 048
  4. KEPRA [Concomitant]
     Indication: CONVULSION
     Dosage: 1000 MG
     Route: 048
  5. MIRTAZAPINE [Concomitant]
     Indication: DEPRESSION
     Dosage: 30 MG
     Route: 048
  6. NEXIUM [Concomitant]
     Indication: GASTROOESOPHAGEAL REFLUX DISEASE
     Dosage: 40 MG
     Route: 048
  7. ALBUTEROL NEBS [Concomitant]
     Indication: DYSPNOEA
     Route: 055
  8. LEVOTHYROXINE [Concomitant]
     Indication: HYPOTHYROIDISM
     Dosage: 75 MG
     Route: 048
  9. NITROGLYCERIN [Concomitant]
     Indication: CHEST PAIN
     Dosage: 0.4 MG
     Route: 060
  10. IPRATROPIUM BROMIDE [Concomitant]
     Indication: HYPERSENSITIVITY
     Dosage: 168 MG
     Route: 045
  11. DILANTIN [Concomitant]
     Indication: CONVULSION
     Dosage: 300 MG
     Route: 048
  12. PROMETHAZINE [Concomitant]
     Indication: NAUSEA
     Dosage: 25 MG
     Route: 048
  13. LIPITOR [Concomitant]
     Indication: BLOOD CHOLESTEROL INCREASED
     Dosage: 80 MG
     Route: 048
  14. FLEXERIL [Concomitant]
     Indication: NECK PAIN
     Dosage: 10 MG
     Route: 048
  15. LORTAB [Concomitant]
     Indication: NECK PAIN
     Dosage: (TABLET) STRENGTH: 10MG/500MG; DAILY DOSE: 10MG/500MG
     Route: 048
  16. XANAX [Concomitant]
     Indication: ANXIETY
     Dosage: 2 MG
     Route: 048
  17. ASPIRIN [Concomitant]
     Indication: ANGIOPATHY
     Dosage: 81 MG
     Route: 048

REACTIONS (7)
  - Cardiac arrest [Recovered/Resolved]
  - Myocardial infarction [Recovered/Resolved]
  - Chest pain [Unknown]
  - Dyspnoea [Unknown]
  - Memory impairment [Not Recovered/Not Resolved]
  - Abdominal distension [Not Recovered/Not Resolved]
  - Incorrect route of drug administration [Recovered/Resolved]
